FAERS Safety Report 6161953-7 (Version None)
Quarter: 2009Q2

REPORT INFORMATION
  Report Type: 
  Country: None (occurrence: None)
  Receive Date: 20090417
  Receipt Date: 20090417
  Transmission Date: 20091009
  Serious: No
  Sender: FDA-Public Use
  Company Number: None

PATIENT
  Age: 2 Year
  Sex: Female
  Weight: 13.6079 kg

DRUGS (1)
  1. MIRALAX [Suspect]
     Indication: CONSTIPATION
     Dosage: 1/2 TSP - 1 TSP DAILY PO
     Route: 048
     Dates: start: 20090401, end: 20090416

REACTIONS (3)
  - ABNORMAL DREAMS [None]
  - CRYING [None]
  - MIDDLE INSOMNIA [None]
